FAERS Safety Report 8104764-5 (Version None)
Quarter: 2012Q1

REPORT INFORMATION
  Report Type: 
  Country: None (occurrence: None)
  Receive Date: 20120201
  Receipt Date: 20120118
  Transmission Date: 20120608
  Serious: Yes (Hospitalization, Other)
  Sender: FDA-Public Use
  Company Number: CN-WATSON-2011-21032

PATIENT
  Age: 22 Year
  Sex: Male

DRUGS (5)
  1. PHENOBARBITAL TAB [Suspect]
     Dosage: 0.2G
     Route: 065
     Dates: start: 20090904
  2. LEVETIRACETAM [Suspect]
     Indication: PARTIAL SEIZURES
     Dosage: 0.5G Q12H NASOGASTRIC TUBE INCREASED BY 0.5G Q3 DAYS TO 1.5G Q12H BY 30JUL
     Route: 050
     Dates: start: 20090717
  3. LEVETIRACETAM [Suspect]
     Dosage: 2G, FURTHER INCREASED FROM 28-AUG, THEN REDUCED BY 1G TO 1.5G ON 10-SEP
     Route: 050
     Dates: start: 20090812
  4. PHENOBARBITAL TAB [Suspect]
     Indication: CONVULSION
     Dosage: 0.2G Q4H
     Route: 042
     Dates: start: 20070801, end: 20090810
  5. PHENOBARBITAL TAB [Suspect]
     Dosage: 0.1G
     Route: 065
     Dates: start: 20090811, end: 20090903

REACTIONS (3)
  - ANTICONVULSANT DRUG LEVEL BELOW THERAPEUTIC [None]
  - CONVULSION [None]
  - DRUG INTERACTION [None]
